FAERS Safety Report 9119261 (Version 1)
Quarter: 2013Q1

REPORT INFORMATION
  Report Type: Spontaneous
  Country: US (occurrence: US)
  Receive Date: 20130104
  Receipt Date: 20130104
  Transmission Date: 20140127
  Serious: No
  Sender: FDA-Public Use
  Company Number: US-TARO-2012P1012697

PATIENT
  Age: 81 Year
  Sex: Male
  Weight: 77.1 kg

DRUGS (3)
  1. MOMETASONE FUROATE [Suspect]
     Indication: PSORIASIS
     Route: 061
     Dates: start: 2011, end: 2011
  2. DIOVAN [Concomitant]
  3. CRESTOR [Concomitant]

REACTIONS (1)
  - Drug ineffective [Unknown]
